FAERS Safety Report 7268679-7 (Version None)
Quarter: 2011Q1

REPORT INFORMATION
  Report Type: 
  Country: None (occurrence: None)
  Receive Date: 20110201
  Receipt Date: 20110124
  Transmission Date: 20110831
  Serious: Yes (Other)
  Sender: FDA-Public Use
  Company Number: PL-PFIZER INC-2011010813

PATIENT
  Sex: Female

DRUGS (1)
  1. ZETAMAX [Suspect]
     Indication: UPPER RESPIRATORY TRACT INFECTION
     Dosage: UNK
     Route: 048
     Dates: start: 20110101

REACTIONS (2)
  - DIARRHOEA [None]
  - DEHYDRATION [None]
